FAERS Safety Report 6318628-0 (Version None)
Quarter: 2009Q4

REPORT INFORMATION
  Report Type: 
  Country: None (occurrence: None)
  Receive Date: 20090819
  Receipt Date: 20090807
  Transmission Date: 20100525
  Serious: Yes (Hospitalization, Other)
  Sender: FDA-Public Use
  Company Number: URSO-2009-102

PATIENT
  Age: 47 Year
  Sex: Female

DRUGS (34)
  1. URSODIOL [Suspect]
     Indication: HEPATITIS C
     Dosage: 300MG , ORAL
     Route: 048
     Dates: start: 20080121, end: 20080217
  2. URSODIOL [Suspect]
     Indication: LIVER DISORDER
     Dosage: 300MG , ORAL
     Route: 048
     Dates: start: 20080121, end: 20080217
  3. URSODIOL [Suspect]
     Indication: HEPATITIS C
     Dosage: 600MG , ORAL
     Route: 048
     Dates: start: 20080218, end: 20090317
  4. URSODIOL [Suspect]
     Indication: LIVER DISORDER
     Dosage: 600MG , ORAL
     Route: 048
     Dates: start: 20080218, end: 20090317
  5. HIBON  (RIBOFLAVIN TETRABUTYRATE) [Suspect]
     Indication: CONCOMITANT DISEASE AGGRAVATED
     Dosage: 3.40 MG,ORAL
     Route: 048
  6. LANIRAPID (METILDIGOXIN) [Suspect]
     Indication: CONCOMITANT DISEASE AGGRAVATED
     Dosage: 0.1 MG, ORAL
     Route: 048
  7. LASIX [Suspect]
     Dosage: 20 MG, ORAL
     Route: 048
  8. SLOW-K [Suspect]
     Indication: CONCOMITANT DISEASE AGGRAVATED
     Dosage: 600 MG, ORAL
     Route: 048
  9. JUVELA N (TOCOPHEROL NICOTINATE) [Suspect]
     Dosage: 600 MG, ORAL
     Route: 048
     Dates: start: 20081009
  10. VITAMEDIN (BENFOTIAMINE_B6 _B12 COMBINED DRUG) [Suspect]
     Dosage: 75 DF, ORAL
     Route: 048
  11. WARFARIN (WARFARIN POTASSIUM) [Suspect]
     Dosage: 2.5 MG, ORAL
     Route: 048
  12. ALPRAZOLAM [Suspect]
     Dosage: 0.8 MG,ORAL
     Route: 048
  13. ABILIFY [Suspect]
     Dosage: 6 MG, ORAL
     Route: 048
  14. FERROMIA (SODIUM FERROUS CITRATE) [Suspect]
     Dosage: 1.2 MG, ORAL
     Route: 048
  15. GLUCONSAN K (POTASSIUM GLUCONATE) [Suspect]
     Dosage: 8 MEQ, ORAL
     Route: 048
  16. PURSENNID (SENNOSIDE) [Suspect]
     Dosage: ORAL
     Route: 048
  17. KETOPROFEN [Suspect]
     Dosage: TOPICAL
     Route: 061
  18. TSUMURA JUZEN-TAIHO-TO (JUZEN-TAIHO-TO) [Suspect]
     Dosage: V
     Route: 048
  19. TSUMURA SHAKUYAKU-KANZO-TO (SHAKUYAKU-KANZO-TO) [Suspect]
     Route: 048
  20. TSUMURA TOKISHAKUYAKUSAN (TOKISHAKUYAKUSAN) [Suspect]
     Dosage: ORAL
     Route: 048
  21. RISPERDAL [Suspect]
     Dosage: ORAL
     Route: 048
  22. ENSURE LIQUID (PARENTERAL NUTRITION) [Suspect]
     Dosage: ORAL
     Route: 048
  23. RISPERDAL [Suspect]
     Dosage: ORAL
     Route: 048
  24. TSUMURA DAI-KENCHU-TO (DAI-KENCHU-TO) [Suspect]
     Dosage: ORAL
     Route: 048
  25. NITRAZEPAM [Suspect]
     Dosage: ORAL
     Route: 048
  26. SILECE (FLUNITRAZEPAM) [Suspect]
     Dosage: ORAL
     Route: 048
  27. LEXOTAN (BROMAZEPAM) [Suspect]
     Dosage: ORAL
     Route: 048
  28. HIRNAMIN (LEVOMEPROMAZINE MALEATE) [Suspect]
     Dosage: ORAL
     Route: 048
  29. FLAVITAN (FLAVIN ADENINE DINUCLEOTIDE) [Suspect]
     Dosage: ORAL
     Route: 048
  30. LAXOBERON (SODIUM PICOSULFATE) [Suspect]
     Dosage: ORAL
     Route: 048
  31. MAGMITT (MAGNESIUM OXIDE) [Suspect]
     Dosage: ORAL
     Route: 048
  32. GLYCERIN (GLYCERIN) [Suspect]
     Dosage: RECTAL
     Route: 054
  33. ISODINE [Suspect]
     Dosage: OROPHARINGEAL
     Route: 049
  34. PL (NON-PYRINE COLD PREPARATION) [Suspect]
     Dosage: ORAL
     Route: 048

REACTIONS (3)
  - CONDITION AGGRAVATED [None]
  - PLATELET COUNT DECREASED [None]
  - SCHIZOPHRENIA [None]
